FAERS Safety Report 7067986-0 (Version None)
Quarter: 2010Q4

REPORT INFORMATION
  Report Type: 
  Country: None (occurrence: None)
  Receive Date: 20101028
  Receipt Date: 20101020
  Transmission Date: 20110411
  Serious: Yes (Other)
  Sender: FDA-Public Use
  Company Number: US-US-EMD SERONO, INC.-7021937

PATIENT
  Sex: Female

DRUGS (18)
  1. REBIF [Suspect]
     Indication: MULTIPLE SCLEROSIS
     Route: 058
     Dates: start: 20100801
  2. ALPHA LIPOIC ACID [Concomitant]
     Route: 048
  3. ASPIRIN [Concomitant]
     Route: 048
  4. EXCEDRIN (MIGRAINE) [Concomitant]
  5. BIMATOPROST [Concomitant]
  6. VITAMIN D3 [Concomitant]
     Route: 048
  7. FIORICET [Concomitant]
     Route: 048
  8. LUNESTA [Concomitant]
  9. PROBIOTIC COMPLEX [Concomitant]
     Route: 048
  10. ATIVAN [Concomitant]
     Indication: ANXIETY
     Route: 048
  11. LUTEIN [Concomitant]
     Route: 048
  12. MINERAL TAB [Concomitant]
     Route: 048
  13. MULTI-VITAMIN [Concomitant]
     Route: 048
  14. ALEVE (CAPLET) [Concomitant]
     Route: 048
  15. REMERON [Concomitant]
     Route: 048
  16. ORTHO EVRA [Concomitant]
     Route: 062
  17. FISH OIL [Concomitant]
     Route: 048
  18. ZOLOFT [Concomitant]
     Route: 048

REACTIONS (5)
  - FATIGUE [None]
  - HEADACHE [None]
  - INJECTION SITE ERYTHEMA [None]
  - INJECTION SITE PAIN [None]
  - PERIORBITAL CELLULITIS [None]
